FAERS Safety Report 18710794 (Version 3)
Quarter: 2021Q1

REPORT INFORMATION
  Report Type: Spontaneous
  Country: US (occurrence: US)
  Receive Date: 20210107
  Receipt Date: 20210305
  Transmission Date: 20210419
  Serious: Yes (Other)
  Sender: FDA-Public Use
  Company Number: US-ASTELLAS-2021US000267

PATIENT
  Age: 63 Year
  Sex: Female

DRUGS (4)
  1. LEXISCAN [Suspect]
     Active Substance: REGADENOSON
     Indication: CARDIAC STRESS TEST
     Dosage: 5 ML (0.4 MG) UNKNOWN FREQ.
     Route: 065
     Dates: start: 20171009, end: 20171009
  2. LEXISCAN [Suspect]
     Active Substance: REGADENOSON
     Indication: CARDIAC STRESS TEST
     Dosage: 5 ML (0.4 MG) UNKNOWN FREQ.
     Route: 065
     Dates: start: 20171009, end: 20171009
  3. LEXISCAN [Suspect]
     Active Substance: REGADENOSON
     Indication: CARDIAC STRESS TEST
     Dosage: 5 ML (0.4 MG) UNKNOWN FREQ.
     Route: 065
     Dates: start: 20171009, end: 20171009
  4. LEXISCAN [Suspect]
     Active Substance: REGADENOSON
     Indication: CARDIAC STRESS TEST
     Dosage: 5 ML (0.4 MG) UNKNOWN FREQ.
     Route: 065
     Dates: start: 20171009, end: 20171009

REACTIONS (1)
  - Paralysis [Recovered/Resolved]

NARRATIVE: CASE EVENT DATE: 20171009
